FAERS Safety Report 23268801 (Version 1)
Quarter: 2023Q4

REPORT INFORMATION
  Report Type: Report from Study
  Country: US (occurrence: US)
  Receive Date: 20231206
  Receipt Date: 20231206
  Transmission Date: 20240110
  Serious: Yes (Hospitalization, Other)
  Sender: FDA-Public Use
  Company Number: US-AMGEN-USASL2023216381

PATIENT
  Sex: Female

DRUGS (1)
  1. ENBREL [Suspect]
     Active Substance: ETANERCEPT
     Indication: Rheumatoid arthritis
     Dosage: 50 MILLIGRAM EVERY 10 DAYS
     Route: 065

REACTIONS (4)
  - Pneumonia fungal [Unknown]
  - Immunodeficiency [Unknown]
  - Upper respiratory tract infection [Unknown]
  - Off label use [Unknown]
